FAERS Safety Report 7155041-0 (Version None)
Quarter: 2010Q4

REPORT INFORMATION
  Report Type: 
  Country: None (occurrence: None)
  Receive Date: 20101214
  Receipt Date: 20091209
  Transmission Date: 20110411
  Serious: No
  Sender: FDA-Public Use
  Company Number: US-AMGEN-KDL371495

PATIENT

DRUGS (7)
  1. ENBREL [Suspect]
     Indication: RHEUMATOID ARTHRITIS
     Dosage: 50 MG, QWK
     Route: 058
     Dates: start: 20090615, end: 20091019
  2. HYDROXYCHLOROQUINE SULFATE [Concomitant]
     Dosage: 50 MG, QD
     Route: 048
  3. PREDNISONE [Concomitant]
  4. LEFLUNOMIDE [Concomitant]
  5. CELECOXIB [Concomitant]
  6. LISINOPRIL [Concomitant]
  7. TRAMADOL [Concomitant]

REACTIONS (1)
  - DRUG INEFFECTIVE [None]
